FAERS Safety Report 11654288 (Version 1)
Quarter: 2015Q4

REPORT INFORMATION
  Report Type: Report from Study
  Country: US (occurrence: US)
  Receive Date: 20151023
  Receipt Date: 20151023
  Transmission Date: 20160304
  Serious: No
  Sender: FDA-Public Use
  Company Number: US-ALEXION-A201504044

PATIENT

DRUGS (1)
  1. SOLIRIS [Suspect]
     Active Substance: ECULIZUMAB
     Indication: HAEMOLYTIC URAEMIC SYNDROME
     Route: 042

REACTIONS (5)
  - White blood cell disorder [Unknown]
  - Platelet count abnormal [Unknown]
  - Haemoglobin abnormal [Unknown]
  - Haematocrit abnormal [Unknown]
  - Blood urea abnormal [Unknown]

NARRATIVE: CASE EVENT DATE: 20151002
